FAERS Safety Report 12554417 (Version 1)
Quarter: 2016Q3

REPORT INFORMATION
  Report Type: Spontaneous
  Country: US (occurrence: US)
  Receive Date: 20160713
  Receipt Date: 20160713
  Transmission Date: 20161109
  Serious: No
  Sender: FDA-Public Use
  Company Number: US-ROCHE-1771289

PATIENT
  Sex: Female

DRUGS (2)
  1. BONVIVA [Suspect]
     Active Substance: IBANDRONATE SODIUM
     Indication: OSTEOPOROSIS
     Route: 048
     Dates: end: 201605
  2. SUTENT [Concomitant]
     Active Substance: SUNITINIB MALATE
     Route: 048
     Dates: start: 201602

REACTIONS (4)
  - Paraesthesia [Unknown]
  - Ulcer [Unknown]
  - Pain [Unknown]
  - Swelling [Unknown]
